FAERS Safety Report 9928889 (Version 1)
Quarter: 2014Q1

REPORT INFORMATION
  Report Type: Report from Study
  Country: US (occurrence: US)
  Receive Date: 20140227
  Receipt Date: 20140227
  Transmission Date: 20141002
  Serious: Yes (Death, Hospitalization, Other)
  Sender: FDA-Public Use
  Company Number: US-ABBVIE-14P-163-1206391-00

PATIENT
  Sex: Female
  Weight: 81.72 kg

DRUGS (1)
  1. HUMIRA [Suspect]
     Indication: RHEUMATOID ARTHRITIS
     Dates: start: 201309, end: 201310

REACTIONS (8)
  - Cerebrovascular accident [Fatal]
  - Temporal arteritis [Unknown]
  - Transient ischaemic attack [Unknown]
  - Convulsion [Unknown]
  - Constipation [Unknown]
  - Blood pressure systolic increased [Unknown]
  - Coronary artery disease [Fatal]
  - Carotid artery occlusion [Unknown]
